FAERS Safety Report 7617758-0 (Version None)
Quarter: 2011Q3

REPORT INFORMATION
  Report Type: 
  Country: None (occurrence: None)
  Receive Date: 20110718
  Receipt Date: 20110711
  Transmission Date: 20111222
  Serious: Yes (Hospitalization, Other)
  Sender: FDA-Public Use
  Company Number: AU-JNJFOC-20110608887

PATIENT
  Sex: Male
  Weight: 120 kg

DRUGS (3)
  1. INVEGA SUSTENNA [Suspect]
     Indication: PSYCHOTIC DISORDER
     Dosage: AFTER 6 DAYS
     Route: 030
  2. RISPERDAL [Suspect]
     Indication: PRODUCT USED FOR UNKNOWN INDICATION
     Route: 048
  3. INVEGA SUSTENNA [Suspect]
     Route: 030
     Dates: start: 20110418

REACTIONS (7)
  - THINKING ABNORMAL [None]
  - MALAISE [None]
  - MENTAL STATUS CHANGES [None]
  - EMOTIONAL DISTRESS [None]
  - HALLUCINATION, AUDITORY [None]
  - AGITATION [None]
  - RESTLESSNESS [None]
